FAERS Safety Report 7097327-4 (Version None)
Quarter: 2010Q4

REPORT INFORMATION
  Report Type: 
  Country: None (occurrence: None)
  Receive Date: 20101111
  Receipt Date: 20100227
  Transmission Date: 20110411
  Serious: No
  Sender: FDA-Public Use
  Company Number: US-KINGPHARMUSA00001-K201000238

PATIENT
  Sex: Male
  Weight: 66.213 kg

DRUGS (3)
  1. SKELAXIN [Suspect]
     Indication: MUSCLE SPASMS
     Dosage: 800 MG, TID
     Route: 048
     Dates: start: 20100219
  2. TRAZODONE [Concomitant]
     Indication: INSOMNIA
     Dosage: 50 MG, QHS
  3. TRILEPTAL [Concomitant]
     Indication: BIPOLAR I DISORDER
     Dosage: UNK

REACTIONS (6)
  - ABDOMINAL PAIN UPPER [None]
  - EYE SWELLING [None]
  - FEELING ABNORMAL [None]
  - LACRIMATION INCREASED [None]
  - NAUSEA [None]
  - OCULAR HYPERAEMIA [None]
